FAERS Safety Report 13639198 (Version 1)
Quarter: 2017Q2

REPORT INFORMATION
  Report Type: Spontaneous
  Country: US (occurrence: US)
  Receive Date: 20170609
  Receipt Date: 20170609
  Transmission Date: 20170830
  Serious: No
  Sender: FDA-Public Use
  Company Number: US-ROCHE-1269125

PATIENT
  Sex: Female

DRUGS (3)
  1. CLONAZEPAM. [Suspect]
     Active Substance: CLONAZEPAM
     Indication: TORTICOLLIS
     Dosage: FOR 1 WEEK
     Route: 065
     Dates: start: 20130619
  2. CLONAZEPAM. [Suspect]
     Active Substance: CLONAZEPAM
     Route: 065
  3. BOTOX [Concomitant]
     Active Substance: ONABOTULINUMTOXINA
     Indication: TORTICOLLIS

REACTIONS (3)
  - Pollakiuria [Unknown]
  - Restlessness [Unknown]
  - Insomnia [Unknown]
